FAERS Safety Report 20135344 (Version 2)
Quarter: 2021Q4

REPORT INFORMATION
  Report Type: Spontaneous
  Country: CH (occurrence: CH)
  Receive Date: 20211201
  Receipt Date: 20211202
  Transmission Date: 20220303
  Serious: Yes (Other)
  Sender: FDA-Public Use
  Company Number: CH-NEBO-PC007702

PATIENT
  Age: 35 Year
  Sex: Female

DRUGS (1)
  1. IRON ISOMALTOSIDE 1000 [Suspect]
     Active Substance: IRON ISOMALTOSIDE 1000
     Indication: Iron deficiency anaemia
     Route: 065

REACTIONS (7)
  - Loss of consciousness [Unknown]
  - Fishbane reaction [Recovered/Resolved]
  - Dyspnoea [Unknown]
  - Tremor [Unknown]
  - Chest discomfort [Recovered/Resolved]
  - Dizziness [Unknown]
  - Infusion site pruritus [Recovered/Resolved]

NARRATIVE: CASE EVENT DATE: 20210810
